FAERS Safety Report 24083452 (Version 1)
Quarter: 2024Q3

REPORT INFORMATION
  Report Type: Spontaneous
  Country: CN (occurrence: CN)
  Receive Date: 20240712
  Receipt Date: 20240712
  Transmission Date: 20241017
  Serious: Yes (Hospitalization, Other)
  Sender: SANOFI AVENTIS
  Company Number: CN-SA-SAC20240704001100

PATIENT
  Age: 71 Year
  Sex: Female
  Weight: 60 kg

DRUGS (1)
  1. CLOPIDOGREL BISULFATE [Suspect]
     Active Substance: CLOPIDOGREL BISULFATE
     Indication: Platelet aggregation inhibition
     Dosage: 75 MG, QD
     Route: 048
     Dates: start: 20240501, end: 20240622

REACTIONS (3)
  - Coronary artery disease [Unknown]
  - Lower gastrointestinal haemorrhage [Unknown]
  - Melaena [Unknown]

NARRATIVE: CASE EVENT DATE: 20240612
